FAERS Safety Report 17127176 (Version 2)
Quarter: 2019Q4

REPORT INFORMATION
  Report Type: Spontaneous
  Country: IT (occurrence: IT)
  Receive Date: 20191209
  Receipt Date: 20191227
  Transmission Date: 20200122
  Serious: Yes (Hospitalization)
  Sender: FDA-Public Use
  Company Number: IT-TEVA-2019-IT-1149532

PATIENT
  Age: 56 Year
  Sex: Female

DRUGS (11)
  1. ADRIAMYCIN [Suspect]
     Active Substance: DOXORUBICIN HYDROCHLORIDE
     Indication: METASTASES TO LUNG
  2. DACARBAZINE. [Suspect]
     Active Substance: DACARBAZINE
     Indication: METASTASES TO LUNG
  3. MESNA. [Concomitant]
     Active Substance: MESNA
     Dosage: AS MAID CHEMOTHERAPY
     Route: 065
  4. ZOLEDRONIC ACID [Concomitant]
     Active Substance: ZOLEDRONIC ACID
     Dosage: ALONGSIDE IFOSFAMIDE
     Route: 065
  5. IFOSFAMIDE. [Suspect]
     Active Substance: IFOSFAMIDE
     Indication: METASTASES TO BONE
     Dosage: AS MAID CHEMOTHERAPY
     Route: 065
     Dates: start: 201607
  6. IFOSFAMIDE. [Suspect]
     Active Substance: IFOSFAMIDE
     Indication: METASTASES TO LUNG
  7. DACARBAZINE. [Suspect]
     Active Substance: DACARBAZINE
     Indication: NEUROFIBROSARCOMA
     Dosage: AS MAID CHEMOTHERAPY
     Route: 065
     Dates: start: 201607
  8. DACARBAZINE. [Suspect]
     Active Substance: DACARBAZINE
     Indication: METASTASES TO BONE
  9. ADRIAMYCIN [Suspect]
     Active Substance: DOXORUBICIN HYDROCHLORIDE
     Indication: NEUROFIBROSARCOMA
     Dosage: ALONGSIDE IFOSFAMIDE
     Route: 065
  10. ADRIAMYCIN [Suspect]
     Active Substance: DOXORUBICIN HYDROCHLORIDE
     Indication: METASTASES TO BONE
     Dosage: AS MAID CHEMOTHERAPY
     Route: 065
     Dates: start: 201607
  11. IFOSFAMIDE. [Suspect]
     Active Substance: IFOSFAMIDE
     Indication: NEUROFIBROSARCOMA
     Dosage: ALONGSIDE DOXORUBICIN AND ALONGSIDE ZOLEDRONIC ACID
     Route: 065

REACTIONS (2)
  - Device related infection [Recovered/Resolved]
  - Bacteraemia [Recovered/Resolved]

NARRATIVE: CASE EVENT DATE: 20170415
